FAERS Safety Report 9184446 (Version 1)
Quarter: 2012Q4

REPORT INFORMATION
  Report Type: 
  Country: US (occurrence: US)
  Receive Date: 20121101
  Receipt Date: 20121101
  Transmission Date: 20130627
  Serious: Yes (Death)
  Sender: FDA-Public Use
  Company Number: US-PFIZER INC-2012271648

PATIENT
  Age: 56 Year
  Sex: Female

DRUGS (14)
  1. SUTENT [Suspect]
     Indication: NEUROENDOCRINE CARCINOMA
     Dosage: 25 mg, UNK
  2. AMBIEN [Concomitant]
     Dosage: UNK
  3. CELEBREX [Concomitant]
     Dosage: UNK
  4. COUMADINE [Concomitant]
     Dosage: UNK
  5. CYMBALTA [Concomitant]
     Dosage: UNK
  6. DULCOLAX [Concomitant]
     Dosage: UNK
  7. LORAZEPAM [Concomitant]
     Dosage: UNK
  8. MAGNESIUM OXIDE [Concomitant]
     Dosage: UNK
  9. METHADONE HYDROCHLORIDE [Concomitant]
     Dosage: UNK
  10. MORPHINE SULFATE [Concomitant]
     Dosage: UNK
  11. RITALIN [Concomitant]
     Dosage: UNK
  12. SCOPACE [Concomitant]
     Dosage: UNK
  13. ZANTAC [Concomitant]
     Dosage: UNK
  14. ZOFRAN [Concomitant]
     Dosage: UNK

REACTIONS (1)
  - Death [Fatal]
